FAERS Safety Report 5075814-8 (Version None)
Quarter: 2006Q3

REPORT INFORMATION
  Report Type: 
  Country: None (occurrence: None)
  Receive Date: 20060809
  Receipt Date: 20060802
  Transmission Date: 20061208
  Serious: Yes (Life-Threatening, Hospitalization)
  Sender: FDA-Public Use
  Company Number: ES-GLAXOSMITHKLINE-B0433246A

PATIENT
  Age: 76 Year
  Sex: Male

DRUGS (3)
  1. AUGMENTIN [Suspect]
     Indication: PHLEBITIS
     Route: 048
     Dates: start: 20051107, end: 20051121
  2. NORMULEN [Suspect]
     Indication: DRUG USE FOR UNKNOWN INDICATION
     Route: 048
     Dates: start: 20051107, end: 20051117
  3. CLEXANE [Suspect]
     Indication: PHLEBITIS
     Dosage: 40MG SINGLE DOSE
     Route: 058
     Dates: start: 20051107, end: 20051121

REACTIONS (1)
  - HEPATITIS CHOLESTATIC [None]
